FAERS Safety Report 21907832 (Version 2)
Quarter: 2023Q2

REPORT INFORMATION
  Report Type: Spontaneous
  Country: US (occurrence: US)
  Receive Date: 20230125
  Receipt Date: 20230414
  Transmission Date: 20230721
  Serious: Yes (Death, Hospitalization, Other)
  Sender: FDA-Public Use
  Company Number: US-GLAXOSMITHKLINE-US2023008687

PATIENT

DRUGS (1)
  1. ZEJULA [Suspect]
     Active Substance: NIRAPARIB
     Indication: Oesophageal carcinoma
     Dosage: 3 DF, QD

REACTIONS (4)
  - Death [Fatal]
  - Hospitalisation [Unknown]
  - Rehabilitation therapy [Unknown]
  - Off label use [Unknown]
